FAERS Safety Report 20505554 (Version 1)
Quarter: 2022Q1

REPORT INFORMATION
  Report Type: Spontaneous
  Country: US (occurrence: US)
  Receive Date: 20220223
  Receipt Date: 20220223
  Transmission Date: 20220423
  Serious: No
  Sender: FDA-Public Use
  Company Number: US-drreddys-SPO/USA/22/0146990

PATIENT
  Sex: Female

DRUGS (1)
  1. HABITROL [Suspect]
     Active Substance: NICOTINE
     Indication: Tobacco user
     Dosage: 3 WEEKS AGO
     Route: 062
     Dates: start: 2022

REACTIONS (4)
  - Gingival bleeding [Unknown]
  - Gingival pain [Unknown]
  - Underdose [Unknown]
  - Treatment noncompliance [Unknown]
